FAERS Safety Report 9467714 (Version 1)
Quarter: 2013Q3

REPORT INFORMATION
  Report Type: Spontaneous
  Country: FR (occurrence: FR)
  Receive Date: 20130821
  Receipt Date: 20130821
  Transmission Date: 20140515
  Serious: Yes (Other)
  Sender: FDA-Public Use
  Company Number: FR-JNJFOC-20130810088

PATIENT
  Sex: Female

DRUGS (11)
  1. XARELTO [Suspect]
     Indication: EMBOLISM VENOUS
     Route: 048
     Dates: start: 201304, end: 2013
  2. XARELTO [Suspect]
     Indication: EMBOLISM VENOUS
     Route: 048
     Dates: start: 2013, end: 201308
  3. XARELTO [Suspect]
     Indication: EMBOLISM VENOUS
     Route: 048
  4. XARELTO [Suspect]
     Indication: PULMONARY EMBOLISM
     Route: 048
     Dates: start: 2013, end: 201308
  5. XARELTO [Suspect]
     Indication: PULMONARY EMBOLISM
     Route: 048
     Dates: start: 201304, end: 2013
  6. XARELTO [Suspect]
     Indication: PULMONARY EMBOLISM
     Route: 048
  7. XARELTO [Suspect]
     Indication: DEEP VEIN THROMBOSIS
     Route: 048
     Dates: start: 201304, end: 2013
  8. XARELTO [Suspect]
     Indication: DEEP VEIN THROMBOSIS
     Route: 048
     Dates: start: 2013, end: 201308
  9. XARELTO [Suspect]
     Indication: DEEP VEIN THROMBOSIS
     Route: 048
  10. HEPARIN [Concomitant]
     Route: 065
  11. MALARONE [Concomitant]
     Route: 065

REACTIONS (3)
  - Hepatitis [Unknown]
  - Cholestasis [Unknown]
  - Hepatocellular injury [Unknown]
